FAERS Safety Report 20125978 (Version 8)
Quarter: 2022Q4

REPORT INFORMATION
  Report Type: Report from Study
  Country: TR (occurrence: TR)
  Receive Date: 20211129
  Receipt Date: 20221209
  Transmission Date: 20230112
  Serious: Yes (Hospitalization, Other)
  Sender: FDA-Public Use
  Company Number: TR-ABBVIE-21K-161-4177484-00

PATIENT
  Age: 54 Year
  Sex: Male

DRUGS (4)
  1. CARBIDOPA\LEVODOPA [Suspect]
     Active Substance: CARBIDOPA\LEVODOPA
     Indication: Parkinson^s disease
     Dosage: MORNING DOSE(ML): 3.00 CONTINUES DOSE(ML):2.70 EXTRA DOSE(ML):1.50
     Route: 050
     Dates: start: 20151020, end: 202211
  2. CARBIDOPA\LEVODOPA [Suspect]
     Active Substance: CARBIDOPA\LEVODOPA
     Dosage: MORNING DOSE(ML): 3.20 CONTINUOUS DOSE(ML): 3.20 EXTRA DOSE(ML): 1.50
     Route: 050
     Dates: start: 202211
  3. PANTO [Concomitant]
     Indication: Gastric ulcer
     Dosage: 80 MILLIGRAM
     Route: 048
     Dates: start: 20211126
  4. BELOC [Concomitant]
     Indication: Tachycardia
     Dosage: UNKNOWN
     Route: 048

REACTIONS (5)
  - Gastric ulcer [Not Recovered/Not Resolved]
  - Stoma site discharge [Recovered/Resolved]
  - Stoma site erythema [Recovered/Resolved]
  - Stoma site infection [Recovered/Resolved]
  - Device issue [Unknown]

NARRATIVE: CASE EVENT DATE: 20211110
